FAERS Safety Report 15602885 (Version 1)
Quarter: 2018Q4

REPORT INFORMATION
  Report Type: Spontaneous
  Country: CN (occurrence: CN)
  Receive Date: 20181109
  Receipt Date: 20181109
  Transmission Date: 20190205
  Serious: Yes (Life-Threatening, Hospitalization, Other)
  Sender: FDA-Public Use
  Company Number: CN-TAKEDA-2018TJP028193

PATIENT
  Age: 19 Year
  Sex: Female
  Weight: 43 kg

DRUGS (2)
  1. COLCHICINE. [Suspect]
     Active Substance: COLCHICINE
     Indication: GOUT
     Dosage: 0.5 MG, QD
     Route: 048
  2. COLCHICINE. [Suspect]
     Active Substance: COLCHICINE
     Indication: FAMILIAL MEDITERRANEAN FEVER

REACTIONS (6)
  - Acute cardiac event [Unknown]
  - Overdose [Unknown]
  - Acute kidney injury [Unknown]
  - Liver injury [Unknown]
  - Gastrointestinal haemorrhage [Unknown]
  - Coma [Unknown]
